FAERS Safety Report 20700659 (Version 2)
Quarter: 2022Q2

REPORT INFORMATION
  Report Type: Report from Study
  Country: PT (occurrence: PT)
  Receive Date: 20220412
  Receipt Date: 20220415
  Transmission Date: 20220720
  Serious: Yes (Other)
  Sender: FDA-Public Use
  Company Number: PT-GILEAD-2022-0573310

PATIENT
  Sex: Female

DRUGS (1)
  1. SACITUZUMAB GOVITECAN [Suspect]
     Active Substance: SACITUZUMAB GOVITECAN
     Indication: Triple negative breast cancer
     Dosage: C1 D1 AND D8 THROUGH C6 D1 AND D8
     Route: 042

REACTIONS (5)
  - Disease progression [Not Recovered/Not Resolved]
  - Disease progression [Not Recovered/Not Resolved]
  - Alopecia [Not Recovered/Not Resolved]
  - Haematotoxicity [Recovered/Resolved]
  - Cough [Unknown]
